FAERS Safety Report 20383927 (Version 1)
Quarter: 2022Q1

REPORT INFORMATION
  Report Type: Report from Study
  Country: US (occurrence: US)
  Receive Date: 20220127
  Receipt Date: 20220127
  Transmission Date: 20220424
  Serious: Yes (Hospitalization)
  Sender: FDA-Public Use
  Company Number: US-NOVARTISPH-NVSC2022US016990

PATIENT
  Sex: Male

DRUGS (1)
  1. ENTRESTO [Suspect]
     Active Substance: SACUBITRIL\VALSARTAN
     Indication: Product used for unknown indication
     Dosage: BID
     Route: 048

REACTIONS (7)
  - COVID-19 pneumonia [Recovered/Resolved]
  - Tremor [Unknown]
  - Ejection fraction decreased [Unknown]
  - Fluid retention [Unknown]
  - Memory impairment [Unknown]
  - Dizziness [Unknown]
  - Hypotension [Unknown]
